FAERS Safety Report 7910065-8 (Version None)
Quarter: 2011Q4

REPORT INFORMATION
  Report Type: 
  Country: None (occurrence: None)
  Receive Date: 20111111
  Receipt Date: 20111103
  Transmission Date: 20120403
  Serious: Yes (Hospitalization, Other)
  Sender: FDA-Public Use
  Company Number: US-BAYER-2011-107458

PATIENT
  Age: 73 Year
  Sex: Female
  Weight: 53 kg

DRUGS (9)
  1. FOLIC ACID [Concomitant]
  2. LANSOPRAZOLE [Concomitant]
  3. CRESTOR [Concomitant]
  4. ASPIRIN [Suspect]
     Indication: ISCHAEMIC HEART DISEASE PROPHYLAXIS
     Dosage: 325 MG, QD
     Route: 048
     Dates: start: 19610101, end: 20110516
  5. VITAMIN D [Concomitant]
  6. SYNTHROID [Concomitant]
  7. ASPIRIN [Suspect]
     Indication: ISCHAEMIC HEART DISEASE PROPHYLAXIS
     Dosage: 162 MG, QD
     Route: 048
     Dates: start: 20110516, end: 20110520
  8. METOPROLOL SUCCINATE [Concomitant]
  9. NITROGLYCERIN [Concomitant]
     Dosage: UNK UNK, PRN

REACTIONS (6)
  - DIARRHOEA [None]
  - GASTROOESOPHAGEAL REFLUX DISEASE [None]
  - FLATULENCE [None]
  - DEHYDRATION [None]
  - MYOCARDIAL INFARCTION [None]
  - DIZZINESS [None]
